FAERS Safety Report 5982749-2 (Version None)
Quarter: 2008Q4

REPORT INFORMATION
  Report Type: 
  Country: None (occurrence: None)
  Receive Date: 20081208
  Receipt Date: 20081126
  Transmission Date: 20090506
  Serious: No
  Sender: FDA-Public Use
  Company Number: BR-ROCHE-599886

PATIENT
  Age: 29 Year
  Sex: Female
  Weight: 67 kg

DRUGS (4)
  1. ROACUTAN [Suspect]
     Indication: ACNE
     Dosage: STRENGTH REPORTED AS: 10 MG / CAPSULE
     Route: 048
     Dates: start: 20080929, end: 20081027
  2. ROACUTAN [Suspect]
     Dosage: STRENGTH REPORTED AS: 20 MG/ CAPSULE
     Route: 048
     Dates: start: 20081028, end: 20081116
  3. PAROXETINE HCL [Concomitant]
     Indication: DEPRESSION
     Route: 048
     Dates: start: 20060501
  4. DIANE [Concomitant]
     Indication: CONTRACEPTION
     Route: 048
     Dates: start: 20080101, end: 20080101

REACTIONS (2)
  - NO ADVERSE EVENT [None]
  - PREGNANCY [None]
